FAERS Safety Report 20263369 (Version 1)
Quarter: 2021Q4

REPORT INFORMATION
  Report Type: Spontaneous
  Country: US (occurrence: US)
  Receive Date: 20211231
  Receipt Date: 20211231
  Transmission Date: 20220304
  Serious: Yes (Other)
  Sender: FDA-Public Use
  Company Number: US-SUN PHARMACEUTICAL INDUSTRIES LTD-2019R1-227056

PATIENT
  Age: 47 Year
  Sex: Female

DRUGS (1)
  1. PRAMIPEXOLE [Suspect]
     Active Substance: PRAMIPEXOLE
     Indication: Restless legs syndrome
     Dosage: HIGH-DOSE/(2-3 MG BID)
     Route: 065
     Dates: start: 2014

REACTIONS (2)
  - Gambling disorder [Unknown]
  - Product prescribing error [Unknown]
